FAERS Safety Report 5722472-2 (Version None)
Quarter: 2008Q2

REPORT INFORMATION
  Report Type: 
  Country: None (occurrence: None)
  Receive Date: 20080429
  Receipt Date: 20070813
  Transmission Date: 20081010
  Serious: No
  Sender: FDA-Public Use
  Company Number: US-ASTRAZENECA-2007UW19487

PATIENT
  Age: 86 Year
  Sex: Female
  Weight: 59.9 kg

DRUGS (5)
  1. NEXIUM [Suspect]
     Indication: COUGH
     Route: 048
  2. NEXIUM [Suspect]
     Indication: GASTROOESOPHAGEAL REFLUX DISEASE
     Route: 048
  3. EVISTA [Concomitant]
  4. HEMALOL [Concomitant]
  5. VITAMIN CAP [Concomitant]

REACTIONS (2)
  - COUGH [None]
  - SNEEZING [None]
